FAERS Safety Report 9099905 (Version 4)
Quarter: 2013Q2

REPORT INFORMATION
  Report Type: Report from Study
  Country: US (occurrence: US)
  Receive Date: 20130215
  Receipt Date: 20130405
  Transmission Date: 20140414
  Serious: Yes (Life-Threatening, Hospitalization)
  Sender: FDA-Public Use
  Company Number: US-009507513-1302USA005275

PATIENT
  Age: 70 Year
  Sex: Female
  Weight: 78.6 kg

DRUGS (18)
  1. VORINOSTAT [Suspect]
     Indication: DIFFUSE LARGE B-CELL LYMPHOMA
     Dosage: 400 MG, QD ON DAYS 1-5
     Route: 048
     Dates: start: 20130126, end: 20130130
  2. VORINOSTAT [Suspect]
     Dosage: 400 MG PO QD ON DAYS 1-5
     Route: 048
     Dates: start: 20130216, end: 20130220
  3. VORINOSTAT [Suspect]
     Dosage: 400MG ON DAYS 1-5 CYCLE 3
     Route: 048
     Dates: start: 20130311, end: 20130313
  4. RITUXIMAB [Suspect]
     Indication: DIFFUSE LARGE B-CELL LYMPHOMA
     Dosage: 375 MG/M2, ON DAY 3, UNK
     Route: 042
     Dates: start: 20130128, end: 20130128
  5. RITUXIMAB [Suspect]
     Dosage: 375 MG/M2, IV INFUSION ON DAY 3
     Route: 042
     Dates: start: 20130218, end: 20130218
  6. RITUXIMAB [Suspect]
     Dosage: 375 MG/M2, ON DAY 3  CYCLE 3
     Route: 042
     Dates: start: 20130313, end: 20130313
  7. CYCLOPHOSPHAMIDE [Suspect]
     Indication: DIFFUSE LARGE B-CELL LYMPHOMA
     Dosage: 750 MG/M2 OVER 30-60 MINUTES ON DAY 3
     Route: 042
     Dates: start: 20130128, end: 20130128
  8. CYCLOPHOSPHAMIDE [Suspect]
     Dosage: 750 MG/M2, IV OVER 30-60 MINUTES ON DAY 3
     Route: 042
     Dates: start: 20130218, end: 20130218
  9. CYCLOPHOSPHAMIDE [Suspect]
     Dosage: 750 MG/M2, OVER 30-60 MINUTES ON DAY 3 CYCLE 3
     Route: 042
     Dates: start: 20130313, end: 20130313
  10. DOXORUBICIN [Suspect]
     Indication: DIFFUSE LARGE B-CELL LYMPHOMA
     Dosage: 50 MG/M2, IVP ON DAY 3
     Route: 042
     Dates: start: 20130128, end: 20130128
  11. DOXORUBICIN [Suspect]
     Dosage: 50 MG/M2, IVP ON DAY 3
     Route: 042
     Dates: start: 20130218, end: 20130218
  12. DOXORUBICIN [Suspect]
     Dosage: 50 MG/M2 IVP, ON DAY 3 CYCLE 3
     Route: 042
     Dates: start: 20130313, end: 20130313
  13. VINCRISTINE [Suspect]
     Indication: DIFFUSE LARGE B-CELL LYMPHOMA
     Dosage: 1.4 MG/M2, IVP ON DAY 3
     Route: 042
     Dates: start: 20130128, end: 20130128
  14. VINCRISTINE [Suspect]
     Dosage: 1.4 MG/M2, IVP ON DAY 3
     Route: 042
     Dates: start: 20130218, end: 20130218
  15. VINCRISTINE [Suspect]
     Dosage: 1.4 MG/M2 IVP, ON DAY 3 CYCLE 3
     Route: 042
     Dates: start: 20130313, end: 20130313
  16. PREDNISONE [Suspect]
     Indication: DIFFUSE LARGE B-CELL LYMPHOMA
     Dosage: 100 MG, QD ON DAYS 3-7
     Route: 048
     Dates: start: 20130128, end: 20130201
  17. PREDNISONE [Suspect]
     Dosage: 100 MG, QD ON DAYS 3-7
     Route: 048
     Dates: start: 20130218, end: 20130222
  18. PREDNISONE [Suspect]
     Dosage: 100 MG, QD ON DAYS 3-7 CYCLE 3
     Route: 048
     Dates: start: 20130313, end: 20130317

REACTIONS (9)
  - Neutrophil count decreased [Recovering/Resolving]
  - Platelet count decreased [Recovering/Resolving]
  - White blood cell count decreased [Recovering/Resolving]
  - Neutrophil count decreased [Recovering/Resolving]
  - Platelet count decreased [Recovering/Resolving]
  - White blood cell count decreased [Recovering/Resolving]
  - Neutrophil count decreased [Recovering/Resolving]
  - Platelet count decreased [Recovering/Resolving]
  - White blood cell count decreased [Recovering/Resolving]
